FAERS Safety Report 16214464 (Version 1)
Quarter: 2019Q2

REPORT INFORMATION
  Report Type: Spontaneous
  Country: GB (occurrence: GB)
  Receive Date: 20190418
  Receipt Date: 20190418
  Transmission Date: 20190711
  Serious: Yes (Other)
  Sender: FDA-Public Use
  Company Number: GB-ALLERGAN-1916582US

PATIENT
  Sex: Female
  Weight: 76 kg

DRUGS (2)
  1. CITALOPRAM HYDROBROMIDE - BP [Suspect]
     Active Substance: CITALOPRAM HYDROBROMIDE
     Indication: PRODUCT USED FOR UNKNOWN INDICATION
     Route: 048
     Dates: start: 20181101, end: 20190315
  2. PREDNISOLONE. [Concomitant]
     Active Substance: PREDNISOLONE
     Route: 065

REACTIONS (5)
  - Cough [Not Recovered/Not Resolved]
  - Abdominal pain upper [Unknown]
  - Amenorrhoea [Unknown]
  - Sinusitis [Not Recovered/Not Resolved]
  - Muscle spasms [Unknown]
